FAERS Safety Report 18623618 (Version 3)
Quarter: 2021Q3

REPORT INFORMATION
  Report Type: Spontaneous
  Country: IT (occurrence: IT)
  Receive Date: 20201216
  Receipt Date: 20210712
  Transmission Date: 20211014
  Serious: Yes (Other)
  Sender: FDA-Public Use
  Company Number: IT-MYLANLABS-2020M1101284

PATIENT
  Age: 81 Year
  Sex: Male

DRUGS (8)
  1. METADON                            /00068902/ [Concomitant]
     Active Substance: METHADONE HYDROCHLORIDE
     Dosage: 5 MILLIGRAM, QD
     Route: 048
  2. ALENDRONATE [Suspect]
     Active Substance: ALENDRONATE SODIUM
     Indication: SPINAL COMPRESSION FRACTURE
     Dosage: UNK
     Route: 048
  3. COUMADIN [Concomitant]
     Active Substance: WARFARIN SODIUM
     Dosage: UNK
     Route: 048
  4. ZOLEDRONIC ACID [Suspect]
     Active Substance: ZOLEDRONIC ACID
     Indication: PROSTATE CANCER
     Dosage: UNK
     Route: 042
  5. MEDROL [Concomitant]
     Active Substance: METHYLPREDNISOLONE
     Dosage: 4 MILLIGRAM
     Route: 048
  6. ALENDRONATE [Suspect]
     Active Substance: ALENDRONATE SODIUM
     Indication: OSTEOPENIA
     Dosage: UNK
     Route: 048
  7. ENANTONE                           /00726902/ [Concomitant]
     Active Substance: LEUPROLIDE ACETATE
     Dosage: 3.75 (UNITS NOT PROVIDED), MONTHLY
     Route: 030
  8. ZOLEDRONIC ACID [Suspect]
     Active Substance: ZOLEDRONIC ACID
     Dosage: UNK, MONTHLY, AT LEAST FOR 18 MONTHS
     Route: 042

REACTIONS (8)
  - Exposed bone in jaw [Recovering/Resolving]
  - Osteonecrosis [Recovering/Resolving]
  - Off label use [Recovering/Resolving]
  - Pain [Recovering/Resolving]
  - Osteonecrosis of jaw [Not Recovered/Not Resolved]
  - Osteomyelitis [Recovering/Resolving]
  - Pain in jaw [Recovering/Resolving]
  - Bone abscess [Recovering/Resolving]
